FAERS Safety Report 5142959-3 (Version None)
Quarter: 2006Q4

REPORT INFORMATION
  Report Type: 
  Country: None (occurrence: None)
  Receive Date: 20061103
  Receipt Date: 20061026
  Transmission Date: 20070319
  Serious: Yes (Other)
  Sender: FDA-Public Use
  Company Number: US-JNJFOC-20061006350

PATIENT
  Sex: Female

DRUGS (12)
  1. INFLIXIMAB [Suspect]
     Indication: RHEUMATOID ARTHRITIS
     Route: 042
  2. ALLEGRA [Concomitant]
  3. CELEBREX [Concomitant]
  4. FOLIC ACID [Concomitant]
  5. FOSAMAX [Concomitant]
  6. HYZAAR [Concomitant]
  7. METHOTREXATE [Concomitant]
  8. VITAMIN CAP [Concomitant]
  9. NASACORT [Concomitant]
  10. ACTOS [Concomitant]
  11. STARLIX [Concomitant]
  12. LIPITOR [Concomitant]

REACTIONS (1)
  - BASAL CELL CARCINOMA [None]
